FAERS Safety Report 4996531-6 (Version None)
Quarter: 2006Q2

REPORT INFORMATION
  Report Type: 
  Country: None (occurrence: None)
  Receive Date: 20060505
  Receipt Date: 20060425
  Transmission Date: 20061013
  Serious: Yes (Other)
  Sender: FDA-Public Use
  Company Number: GXKR2006DE02333

PATIENT
  Age: 70 Year
  Sex: Male

DRUGS (1)
  1. DOXYCYCLINE + AMBROXOL (NGX) (AMBROXOL, DOXYCYCLINE) [Suspect]
     Dosage: 1 CAPSULE/DAY, ORAL
     Route: 048
     Dates: start: 20051101, end: 20051101

REACTIONS (3)
  - DYSPEPSIA [None]
  - FLATULENCE [None]
  - PANCREATITIS CHRONIC [None]
